FAERS Safety Report 19086030 (Version 1)
Quarter: 2021Q2

REPORT INFORMATION
  Report Type: Spontaneous
  Country: JP (occurrence: JP)
  Receive Date: 20210402
  Receipt Date: 20210402
  Transmission Date: 20210717
  Serious: Yes (Other)
  Sender: FDA-Public Use
  Company Number: JP-ASPEN-GLO2021JP001960

PATIENT

DRUGS (13)
  1. ROPIVACAINE HYDROCHLORIDE. [Suspect]
     Active Substance: ROPIVACAINE HYDROCHLORIDE
     Indication: INTERVERTEBRAL DISC DISORDER
     Dosage: 5 ML/H
     Route: 008
  2. AMITRIPTYLINE [Suspect]
     Active Substance: AMITRIPTYLINE
     Indication: PAIN MANAGEMENT
     Dosage: 30 MG
     Route: 048
  3. MORPHINE [Suspect]
     Active Substance: MORPHINE
     Dosage: 60 MG
     Route: 048
  4. MORPHINE [Suspect]
     Active Substance: MORPHINE
     Indication: PAIN MANAGEMENT
     Dosage: UNK
     Route: 048
  5. MORPHINE [Suspect]
     Active Substance: MORPHINE
     Dosage: 90 MG, QD
     Route: 048
  6. DEXAMETHASONE. [Suspect]
     Active Substance: DEXAMETHASONE
     Indication: INTERVERTEBRAL DISC PROTRUSION
  7. DEXAMETHASONE. [Suspect]
     Active Substance: DEXAMETHASONE
     Indication: INTERVERTEBRAL DISC DISORDER
     Dosage: 8 MG, QD
     Route: 065
  8. MEPIVACAINE HYDROCHLORIDE. [Suspect]
     Active Substance: MEPIVACAINE HYDROCHLORIDE
     Indication: INTERVERTEBRAL DISC PROTRUSION
  9. ROPIVACAINE HYDROCHLORIDE. [Suspect]
     Active Substance: ROPIVACAINE HYDROCHLORIDE
     Indication: INTERVERTEBRAL DISC PROTRUSION
  10. MORPHINE [Suspect]
     Active Substance: MORPHINE
     Dosage: 240 MG, QD
     Route: 048
  11. MEPIVACAINE HYDROCHLORIDE. [Suspect]
     Active Substance: MEPIVACAINE HYDROCHLORIDE
     Indication: INTERVERTEBRAL DISC DISORDER
     Dosage: 0.05 MG, TID
     Route: 008
  12. AMITRIPTYLINE [Suspect]
     Active Substance: AMITRIPTYLINE
     Dosage: 60 MG
     Route: 048
  13. FENTANYL. [Suspect]
     Active Substance: FENTANYL
     Indication: PAIN MANAGEMENT
     Dosage: UP TO 100 MCG/H
     Route: 065

REACTIONS (3)
  - Off label use [Unknown]
  - Low birth weight baby [Unknown]
  - Maternal exposure during pregnancy [Unknown]
